FAERS Safety Report 18092091 (Version 1)
Quarter: 2020Q3

REPORT INFORMATION
  Report Type: Spontaneous
  Country: US (occurrence: US)
  Receive Date: 20200730
  Receipt Date: 20200730
  Transmission Date: 20201103
  Serious: Yes (Other)
  Sender: FDA-Public Use
  Company Number: None

PATIENT
  Age: 53 Year
  Sex: Female
  Weight: 51.75 kg

DRUGS (7)
  1. EMGALITY [Suspect]
     Active Substance: GALCANEZUMAB-GNLM
     Indication: MIGRAINE
     Dosage: ?          QUANTITY:1 INJECTION(S);OTHER FREQUENCY:EVERY 28 DAYS;OTHER ROUTE:IN THIGH OR STOMACH?
     Dates: start: 20200330
  2. TUMERIC/PEPERINE/GINGER TABLETS [Concomitant]
  3. COLLAGEN PEPTIDES [Concomitant]
  4. MAGNESIUM [Concomitant]
     Active Substance: MAGNESIUM
  5. DICLOFENAC [Suspect]
     Active Substance: DICLOFENAC
  6. RIZATRIPTAN. [Concomitant]
     Active Substance: RIZATRIPTAN
  7. IBUPROFEN. [Concomitant]
     Active Substance: IBUPROFEN

REACTIONS (7)
  - Alopecia [None]
  - Pain [None]
  - Fatigue [None]
  - Arthritis [None]
  - Skin irritation [None]
  - Urticaria [None]
  - Arthralgia [None]

NARRATIVE: CASE EVENT DATE: 20200730
